FAERS Safety Report 5927122-8 (Version None)
Quarter: 2008Q4

REPORT INFORMATION
  Report Type: 
  Country: None (occurrence: None)
  Receive Date: 20081022
  Receipt Date: 20081010
  Transmission Date: 20090506
  Serious: Yes (Other)
  Sender: FDA-Public Use
  Company Number: JP-PFIZER INC-2008086906

PATIENT
  Age: 37 Year
  Sex: Female

DRUGS (2)
  1. CELECOX [Suspect]
     Indication: RHEUMATOID ARTHRITIS
     Dosage: DAILY DOSE:400MG
     Route: 048
     Dates: start: 20080808, end: 20080918
  2. CORTICOSTEROIDS [Concomitant]

REACTIONS (1)
  - THROMBOSIS [None]
